FAERS Safety Report 13704479 (Version 2)
Quarter: 2017Q3

REPORT INFORMATION
  Report Type: Spontaneous
  Country: FR (occurrence: FR)
  Receive Date: 20170630
  Receipt Date: 20170714
  Transmission Date: 20171127
  Serious: Yes (Death)
  Sender: FDA-Public Use
  Company Number: FR-TEVA-783798ACC

PATIENT
  Age: 64 Year
  Sex: Male

DRUGS (1)
  1. BENDAMUSTINE HYDROCHLORIDE. [Suspect]
     Active Substance: BENDAMUSTINE HYDROCHLORIDE
     Indication: BLASTIC PLASMACYTOID DENDRITIC CELL NEOPLASIA
     Dosage: (D1, D2 EVERY 3 WEEKS X 1 COURSE)
     Route: 042

REACTIONS (2)
  - Central nervous system haemorrhage [Fatal]
  - Off label use [Unknown]
